FAERS Safety Report 7379938-1 (Version None)
Quarter: 2011Q1

REPORT INFORMATION
  Report Type: 
  Country: None (occurrence: None)
  Receive Date: 20110329
  Receipt Date: 20110315
  Transmission Date: 20110831
  Serious: Yes (Hospitalization, Other)
  Sender: FDA-Public Use
  Company Number: PHHY2011BR22492

PATIENT
  Sex: Male

DRUGS (1)
  1. DIOVAN HCT [Suspect]
     Indication: HYPERTENSION
     Dosage: 160/12.5 MG, ONE TABLET DAILY
     Route: 048
     Dates: start: 20100401

REACTIONS (3)
  - NAIL DISCOLOURATION [None]
  - EXTREMITY NECROSIS [None]
  - LIMB INJURY [None]
